FAERS Safety Report 21851780 (Version 1)
Quarter: 2023Q1

REPORT INFORMATION
  Report Type: Report from Study
  Country: IE (occurrence: IE)
  Receive Date: 20230112
  Receipt Date: 20230112
  Transmission Date: 20230417
  Serious: Yes (Hospitalization)
  Sender: FDA-Public Use
  Company Number: IE-AstraZeneca-2023A005694

PATIENT
  Age: 0 Year
  Sex: Male

DRUGS (7)
  1. SYNAGIS [Suspect]
     Active Substance: PALIVIZUMAB
     Indication: Premature baby
     Dates: start: 20221004
  2. SYNAGIS [Suspect]
     Active Substance: PALIVIZUMAB
     Dates: start: 20221104
  3. SYNAGIS [Suspect]
     Active Substance: PALIVIZUMAB
     Dates: start: 20221205
  4. SYNAGIS [Suspect]
     Active Substance: PALIVIZUMAB
     Dates: start: 20230104
  5. FERINSOL [Concomitant]
  6. LOSEC [Concomitant]
     Active Substance: OMEPRAZOLE
  7. DALIVIT [Concomitant]

REACTIONS (1)
  - Influenza [Unknown]

NARRATIVE: CASE EVENT DATE: 20221214
